FAERS Safety Report 8316996-1 (Version None)
Quarter: 2012Q2

REPORT INFORMATION
  Report Type: 
  Country: None (occurrence: None)
  Receive Date: 20120425
  Receipt Date: 20120413
  Transmission Date: 20120825
  Serious: Yes (Hospitalization)
  Sender: FDA-Public Use
  Company Number: AUR-APL-2009-01257

PATIENT
  Age: 68 Year
  Sex: Female
  Weight: 71.65 kg

DRUGS (18)
  1. LORAZEPAM [Concomitant]
  2. FOLIC ACID [Concomitant]
  3. BAPINEUZUMAB (VALETHAMATE BROMIDE) [Suspect]
     Indication: DEMENTIA ALZHEIMER'S TYPE
     Dosage: INTRAVENOUS; INTRAVENOUS; INTRAVENOS; INTRAVENOUS
     Route: 036
     Dates: start: 20090129, end: 20090129
  4. BAPINEUZUMAB (VALETHAMATE BROMIDE) [Suspect]
     Indication: DEMENTIA ALZHEIMER'S TYPE
     Dosage: INTRAVENOUS; INTRAVENOUS; INTRAVENOS; INTRAVENOUS
     Route: 036
     Dates: start: 20090730, end: 20090730
  5. BAPINEUZUMAB (VALETHAMATE BROMIDE) [Suspect]
     Indication: DEMENTIA ALZHEIMER'S TYPE
     Dosage: INTRAVENOUS; INTRAVENOUS; INTRAVENOS; INTRAVENOUS
     Route: 036
     Dates: start: 20090504, end: 20090504
  6. BAPINEUZUMAB (VALETHAMATE BROMIDE) [Suspect]
     Indication: DEMENTIA ALZHEIMER'S TYPE
     Dosage: INTRAVENOUS; INTRAVENOUS; INTRAVENOS; INTRAVENOUS
     Route: 036
     Dates: start: 20081027, end: 20081027
  7. BENADRYL [Concomitant]
  8. HYDROCHLOROTHIAZIDE [Suspect]
     Indication: PRODUCT USED FOR UNKNOWN INDICATION
     Dosage: 6.25 MG, 1 IN D, ORAL
     Route: 048
     Dates: start: 20090827, end: 20091029
  9. FLUTICASONE PROPIONATE [Concomitant]
  10. LEVOTHYROXINE SODIUM [Concomitant]
  11. SPIRIVIA (TIOTROPIUM BROMIDE) [Concomitant]
  12. CALCIUM WITH VITAMIN D (LEKOVIT CA) [Concomitant]
  13. VITAMIN B COMPLEX (B-KOMPLEX) [Concomitant]
  14. SIMVASTATIN [Concomitant]
  15. CITALOPRAM HYDROBROMIDE [Concomitant]
  16. FOSAMAX [Concomitant]
  17. ACETAMINOPHEN [Concomitant]
  18. ARICEPT [Concomitant]

REACTIONS (2)
  - PRESYNCOPE [None]
  - DEHYDRATION [None]
